FAERS Safety Report 13585860 (Version 1)
Quarter: 2017Q2

REPORT INFORMATION
  Report Type: Spontaneous
  Country: US (occurrence: US)
  Receive Date: 20170526
  Receipt Date: 20170526
  Transmission Date: 20170830
  Serious: Yes (Disabling, Other)
  Sender: FDA-Public Use
  Company Number: US-RICONPHARMA LLC-2017RIC00002

PATIENT
  Age: 59 Year
  Sex: Female

DRUGS (1)
  1. QUININE SULFATE. [Suspect]
     Active Substance: QUININE SULFATE
     Route: 048

REACTIONS (3)
  - Overdose [Recovered/Resolved]
  - Blindness [Recovering/Resolving]
  - Retinal toxicity [Unknown]
